FAERS Safety Report 13153380 (Version 1)
Quarter: 2017Q1

REPORT INFORMATION
  Report Type: Spontaneous
  Country: US (occurrence: US)
  Receive Date: 20170125
  Receipt Date: 20170125
  Transmission Date: 20170428
  Serious: Yes (Other)
  Sender: FDA-Public Use
  Company Number: None

PATIENT
  Age: 41 Year
  Sex: Female
  Weight: 83.9 kg

DRUGS (1)
  1. IMURAN [Suspect]
     Active Substance: AZATHIOPRINE
     Indication: URTICARIA CHRONIC
     Route: 048
     Dates: start: 20161213, end: 20161223

REACTIONS (4)
  - Urticaria [None]
  - Leukopenia [None]
  - Alopecia [None]
  - Neutrophil count decreased [None]

NARRATIVE: CASE EVENT DATE: 20170108
